FAERS Safety Report 5578530-9 (Version None)
Quarter: 2007Q4

REPORT INFORMATION
  Report Type: 
  Country: None (occurrence: None)
  Receive Date: 20071227
  Receipt Date: 20071211
  Transmission Date: 20080405
  Serious: Yes (Other)
  Sender: FDA-Public Use
  Company Number: 18071

PATIENT
  Age: 65 Year
  Sex: Female

DRUGS (3)
  1. ANZATAX [Suspect]
     Dosage: 280 MG DAILY IV
     Route: 042
     Dates: start: 20071205, end: 20071205
  2. TROPISETRON [Concomitant]
  3. TRIMETON [Concomitant]

REACTIONS (3)
  - BONE PAIN [None]
  - DYSPNOEA [None]
  - MYALGIA [None]
